FAERS Safety Report 9860002 (Version 2)
Quarter: 2014Q1

REPORT INFORMATION
  Report Type: Spontaneous
  Country: US (occurrence: US)
  Receive Date: 20140131
  Receipt Date: 20140228
  Transmission Date: 20141002
  Serious: Yes (Hospitalization)
  Sender: FDA-Public Use
  Company Number: US-GILEAD-2014-0093336

PATIENT
  Sex: Female

DRUGS (28)
  1. LETAIRIS [Suspect]
     Indication: PULMONARY ARTERIAL HYPERTENSION
     Dosage: 5 MG, QD
     Route: 065
     Dates: start: 20130409
  2. HUMALOG [Concomitant]
  3. ALBUTEROL                          /00139501/ [Concomitant]
  4. LANTUS [Concomitant]
  5. METFORMIN [Concomitant]
  6. AMIODARONE [Concomitant]
  7. LOSARTAN [Concomitant]
  8. METOPROLOL [Concomitant]
  9. NORVASC [Concomitant]
  10. RANEXA [Concomitant]
  11. LASIX                              /00032601/ [Concomitant]
  12. CYMBALTA [Concomitant]
  13. ALDACTONE                          /00006201/ [Concomitant]
  14. OMEPRAZOLE [Concomitant]
  15. WARFARIN [Concomitant]
  16. LIPITOR [Concomitant]
  17. FISH OIL [Concomitant]
  18. MVI                                /07504101/ [Concomitant]
  19. B COMPLEX                          /06817001/ [Concomitant]
  20. VIT C [Concomitant]
  21. ESTROVEN [Concomitant]
  22. MELATONIN [Concomitant]
  23. ASA [Concomitant]
  24. CALCIUM [Concomitant]
  25. HYDROCODONE [Concomitant]
  26. SYMBICORT [Concomitant]
  27. VENTOLIN                           /00139501/ [Concomitant]
  28. DIGOXIN [Concomitant]

REACTIONS (1)
  - Infection [Unknown]
